FAERS Safety Report 9973119 (Version 2)
Quarter: 2014Q1

REPORT INFORMATION
  Report Type: Spontaneous
  Country: JP (occurrence: JP)
  Receive Date: 20140306
  Receipt Date: 20140324
  Transmission Date: 20141002
  Serious: Yes (Other)
  Sender: FDA-Public Use
  Company Number: JP-BRISTOL-MYERS SQUIBB COMPANY-20408597

PATIENT
  Age: 55 Year
  Sex: Male

DRUGS (3)
  1. METGLUCO [Suspect]
     Indication: DIABETES MELLITUS
     Dosage: INITIAL 1000 MG,INCREASED TO 1500MG ON 26-SEP-2013.
     Route: 048
  2. SITAGLIPTIN PHOSPHATE [Concomitant]
     Route: 048
  3. TAGAMET [Concomitant]

REACTIONS (1)
  - Renal impairment [Recovering/Resolving]
